FAERS Safety Report 23641021 (Version 2)
Quarter: 2025Q3

REPORT INFORMATION
  Report Type: Spontaneous
  Country: EU (occurrence: EU)
  Receive Date: 20240318
  Receipt Date: 20250711
  Transmission Date: 20251021
  Serious: Yes (Death, Congenital Anomaly)
  Sender: SANDOZ
  Company Number: EU-DKMA-ADR 28538277

PATIENT
  Age: 30 Week

DRUGS (2)
  1. AZOPT [Suspect]
     Active Substance: BRINZOLAMIDE
     Indication: Ocular hypertension
     Dosage: 4 DRP, QD (STRENGTH: 10 MG/MLDOSAGE: 1 DROP IN BOTH EYES.)
     Route: 065
     Dates: start: 20230425
  2. ALPHAGAN P [Suspect]
     Active Substance: BRIMONIDINE TARTRATE
     Indication: Glaucoma
     Dosage: 4 DRP, QD (DOSAGE: 1 DROP IN BOTH EYES. UNKNOWN IF TAKEN FROM DEC2022 TO 20JAN2023.STRENGTH: 2 MG/ML
     Route: 065
     Dates: start: 2022, end: 20230425

REACTIONS (3)
  - Death [Fatal]
  - Foetal exposure during pregnancy [Fatal]
  - Hypertelorism [Fatal]

NARRATIVE: CASE EVENT DATE: 20230511
